FAERS Safety Report 6446431-X (Version None)
Quarter: 2009Q4

REPORT INFORMATION
  Report Type: 
  Country: None (occurrence: None)
  Receive Date: 20091119
  Receipt Date: 20091106
  Transmission Date: 20100525
  Serious: Yes (Other)
  Sender: FDA-Public Use
  Company Number: PHHY2009JP12233

PATIENT
  Sex: Male

DRUGS (6)
  1. AMN107 AMN+CAP [Suspect]
     Indication: CHRONIC MYELOID LEUKAEMIA
     Dosage: 800 MG DAILY
     Route: 048
     Dates: start: 20090317, end: 20090326
  2. BASEN [Concomitant]
     Dosage: UNK
     Route: 048
     Dates: start: 20080605
  3. DIOVAN [Concomitant]
     Dosage: UNK
     Route: 048
     Dates: start: 20080605
  4. ARTIST [Concomitant]
     Dosage: UNK
     Route: 048
     Dates: start: 20080605
  5. ACTOS [Concomitant]
     Dosage: UNK
     Route: 048
     Dates: start: 20081128
  6. AMARYL [Concomitant]
     Dosage: UNK
     Route: 048
     Dates: start: 20080605

REACTIONS (12)
  - ATRIAL FIBRILLATION [None]
  - CARDIAC DISORDER [None]
  - CARDIAC FAILURE [None]
  - DYSPNOEA [None]
  - HAEMATOCRIT DECREASED [None]
  - HAEMOGLOBIN DECREASED [None]
  - HEPATIC FUNCTION ABNORMAL [None]
  - PLEURAL EFFUSION [None]
  - RED BLOOD CELL COUNT DECREASED [None]
  - RENAL DISORDER [None]
  - TUMOUR LYSIS SYNDROME [None]
  - WEIGHT DECREASED [None]
